FAERS Safety Report 23123633 (Version 1)
Quarter: 2023Q4

REPORT INFORMATION
  Report Type: Spontaneous
  Country: CA (occurrence: CA)
  Receive Date: 20231030
  Receipt Date: 20231030
  Transmission Date: 20240109
  Serious: Yes (Hospitalization, Other)
  Sender: FDA-Public Use
  Company Number: None

PATIENT
  Age: 43 Year
  Sex: Female

DRUGS (1)
  1. METHOTREXATE SODIUM [Suspect]
     Active Substance: METHOTREXATE SODIUM
     Indication: Product used for unknown indication
     Route: 065

REACTIONS (7)
  - Respiratory symptom [Unknown]
  - Drug ineffective [Unknown]
  - Dysphonia [Unknown]
  - Granuloma [Unknown]
  - Dyspnoea [Unknown]
  - Immunoglobulin G4 related disease [Unknown]
  - Soft tissue mass [Unknown]
